FAERS Safety Report 8977602 (Version 1)
Quarter: 2012Q4

REPORT INFORMATION
  Report Type: 
  Country: US (occurrence: US)
  Receive Date: 20121220
  Receipt Date: 20121220
  Transmission Date: 20130627
  Serious: Yes (Other)
  Sender: FDA-Public Use
  Company Number: US-GLAXOSMITHKLINE-A1005936A

PATIENT
  Age: 15 Year
  Sex: Male

DRUGS (3)
  1. ADVAIR [Suspect]
     Indication: ASTHMA
     Dosage: 2PUFF Twice per day
     Route: 055
     Dates: start: 2010
  2. PREDNISONE [Suspect]
     Indication: PRODUCT USED FOR UNKNOWN INDICATION
     Route: 048
  3. NO CONCURRENT MEDICATION [Concomitant]

REACTIONS (5)
  - Adrenal suppression [Recovered/Resolved]
  - Nasopharyngitis [Recovering/Resolving]
  - Cough [Recovering/Resolving]
  - Dyskinesia [Not Recovered/Not Resolved]
  - Overdose [Unknown]
